FAERS Safety Report 22519563 (Version 1)
Quarter: 2023Q2

REPORT INFORMATION
  Report Type: Spontaneous
  Country: US (occurrence: None)
  Receive Date: 20230602
  Receipt Date: 20230602
  Transmission Date: 20230721
  Serious: Yes (Hospitalization)
  Sender: FDA-Public Use
  Company Number: None

PATIENT
  Age: 53 Year
  Sex: Female
  Weight: 117.9 kg

DRUGS (2)
  1. CIPROFLOXACIN [Suspect]
     Active Substance: CIPROFLOXACIN
     Indication: Wound infection pseudomonas
     Dosage: FREQUENCY : TWICE A DAY;?
     Route: 048
     Dates: start: 20230506, end: 20230514
  2. CEFTRIAXONE [Concomitant]
     Active Substance: CEFTRIAXONE
     Dates: start: 20230506

REACTIONS (7)
  - Nausea [None]
  - Hypophagia [None]
  - Vomiting [None]
  - Chest discomfort [None]
  - Tubulointerstitial nephritis [None]
  - Crystal nephropathy [None]
  - Acute kidney injury [None]

NARRATIVE: CASE EVENT DATE: 20230515
